FAERS Safety Report 24381249 (Version 2)
Quarter: 2024Q4

REPORT INFORMATION
  Report Type: Spontaneous
  Country: PT (occurrence: PT)
  Receive Date: 20241001
  Receipt Date: 20241018
  Transmission Date: 20250114
  Serious: Yes (Hospitalization, Other)
  Sender: RANBAXY
  Company Number: PT-SUN PHARMACEUTICAL INDUSTRIES LTD-2024R1-470476

PATIENT
  Sex: Female

DRUGS (1)
  1. LITHIUM [Suspect]
     Active Substance: LITHIUM
     Indication: Bipolar disorder
     Dosage: 800 MILLIGRAM, DAILY
     Route: 065

REACTIONS (3)
  - Poisoning [Recovered/Resolved]
  - Stress cardiomyopathy [Recovered/Resolved]
  - Drug level increased [Unknown]
